FAERS Safety Report 8819188 (Version 1)
Quarter: 2012Q4

REPORT INFORMATION
  Report Type: Spontaneous
  Country: US (occurrence: None)
  Receive Date: 20121004
  Receipt Date: 20121004
  Transmission Date: 20130627
  Serious: Yes (Other)
  Sender: FDA-Public Use
  Company Number: None

PATIENT
  Age: 58 Year
  Sex: Male

DRUGS (1)
  1. INCIVEK [Suspect]
     Indication: HEPATITIS C
     Route: 048
     Dates: start: 20120807, end: 20121001

REACTIONS (7)
  - Rash generalised [None]
  - Blister [None]
  - Purulence [None]
  - Skin exfoliation [None]
  - Oedema peripheral [None]
  - Oedema peripheral [None]
  - Weight increased [None]
